FAERS Safety Report 8188491-4 (Version None)
Quarter: 2012Q1

REPORT INFORMATION
  Report Type: 
  Country: None (occurrence: None)
  Receive Date: 20120306
  Receipt Date: 20120229
  Transmission Date: 20120608
  Serious: Yes (Hospitalization, Other)
  Sender: FDA-Public Use
  Company Number: PHHY2012BR018701

PATIENT
  Sex: Female

DRUGS (6)
  1. EXFORGE [Suspect]
     Indication: HYPERTENSION
     Dosage: 1 DF (320/5 MG), QD (AFTER DINNER)
     Route: 048
     Dates: start: 20110101
  2. INSULIN [Concomitant]
     Indication: BLOOD GLUCOSE FLUCTUATION
     Dosage: UNK
  3. LEVOTHYROXINE SODIUM [Concomitant]
  4. CRESTOR [Concomitant]
  5. VASOGARD [Concomitant]
  6. RASILEZ HCT [Suspect]
     Indication: HYPERTENSION
     Dosage: 1 DF (300/12.5MG), QD (AFTER BREAKFAST)
     Route: 048
     Dates: start: 20101001

REACTIONS (3)
  - WRIST FRACTURE [None]
  - FALL [None]
  - BLOOD PRESSURE INCREASED [None]
